FAERS Safety Report 4443448-1 (Version None)
Quarter: 2004Q3

REPORT INFORMATION
  Report Type: 
  Country: None (occurrence: None)
  Receive Date: 20040908
  Receipt Date: 20030814
  Transmission Date: 20050211
  Serious: No
  Sender: FDA-Public Use
  Company Number: US-GLAXOSMITHKLINE-A0421211A

PATIENT
  Age: 9 Year
  Sex: Female
  Weight: 21.4 kg

DRUGS (9)
  1. LAMICTAL [Suspect]
     Indication: EPILEPSY
     Dosage: 150MG TWICE PER DAY
     Route: 048
  2. PHENOBARB [Concomitant]
  3. TRANXENE [Concomitant]
  4. DILANTIN [Concomitant]
  5. ROBINUL [Concomitant]
  6. CARNITOR [Concomitant]
  7. ZANTAC [Concomitant]
  8. ZYRTEC [Concomitant]
  9. PANMIST [Concomitant]

REACTIONS (3)
  - RASH ERYTHEMATOUS [None]
  - RASH PAPULAR [None]
  - SOMNOLENCE [None]
